FAERS Safety Report 14020336 (Version 3)
Quarter: 2019Q2

REPORT INFORMATION
  Report Type: Spontaneous
  Country: DK (occurrence: DK)
  Receive Date: 20170928
  Receipt Date: 20190529
  Transmission Date: 20190711
  Serious: Yes (Death, Life-Threatening, Hospitalization, Other)
  Sender: FDA-Public Use
  Company Number: DK-JNJFOC-20170926725

PATIENT
  Age: 68 Year
  Sex: Male
  Weight: 110 kg

DRUGS (1)
  1. INFLIXIMAB, RECOMBINANT [Suspect]
     Active Substance: INFLIXIMAB
     Indication: SARCOIDOSIS
     Route: 042

REACTIONS (8)
  - Haemophagocytic lymphohistiocytosis [Fatal]
  - Visceral leishmaniasis [Not Recovered/Not Resolved]
  - Pancytopenia [Unknown]
  - Multiple organ dysfunction syndrome [Fatal]
  - Retroperitoneal haemorrhage [Fatal]
  - Off label use [Unknown]
  - Epstein-Barr virus infection [Not Recovered/Not Resolved]
  - Product use in unapproved indication [Unknown]

NARRATIVE: CASE EVENT DATE: 20161123
